FAERS Safety Report 8303541-X (Version None)
Quarter: 2012Q2

REPORT INFORMATION
  Report Type: 
  Country: None (occurrence: None)
  Receive Date: 20120423
  Receipt Date: 20120417
  Transmission Date: 20120825
  Serious: Yes (Hospitalization, Other)
  Sender: FDA-Public Use
  Company Number: FR-PFIZER INC-2012098679

PATIENT
  Age: 74 Year
  Sex: Male

DRUGS (8)
  1. TEGRETOL [Concomitant]
     Dosage: UNK
  2. PHENYTOIN SODIUM [Interacting]
     Indication: EPILEPSY
     Dosage: UNK, TWICE A DAY
     Route: 048
  3. BISOPROLOL [Concomitant]
     Dosage: UNK
  4. PREVISCAN [Concomitant]
     Dosage: UNK
     Dates: start: 20120306
  5. LASIX [Suspect]
     Indication: OEDEMA PERIPHERAL
     Dosage: 40 MG, DAILY
     Route: 048
     Dates: start: 20120302, end: 20120315
  6. CORDARONE [Interacting]
     Indication: ATRIAL FIBRILLATION
     Dosage: 200 MG, 2X/DAY
     Route: 048
     Dates: start: 20120306, end: 20120311
  7. URBANYL [Concomitant]
     Dosage: UNK
  8. SODIUM CHLORIDE [Concomitant]
     Dosage: UNK

REACTIONS (4)
  - HYPERTENSION [None]
  - CEREBELLAR SYNDROME [None]
  - DYSARTHRIA [None]
  - DRUG INTERACTION [None]
